FAERS Safety Report 7361568-9 (Version None)
Quarter: 2011Q1

REPORT INFORMATION
  Report Type: 
  Country: None (occurrence: None)
  Receive Date: 20110318
  Receipt Date: 20110315
  Transmission Date: 20110831
  Serious: Yes (Hospitalization, Other)
  Sender: FDA-Public Use
  Company Number: US-ABBOTT-11P-163-0711972-00

PATIENT
  Sex: Male
  Weight: 88.53 kg

DRUGS (4)
  1. FOLIC ACID [Concomitant]
     Indication: VITAMIN SUPPLEMENTATION
  2. ZOCOR [Concomitant]
     Indication: BLOOD CHOLESTEROL INCREASED
  3. HUMIRA [Suspect]
     Indication: PSORIATIC ARTHROPATHY
     Dates: start: 20080101, end: 20100901
  4. HUMIRA [Suspect]
     Dates: start: 20110315

REACTIONS (3)
  - MUSCLE INJURY [None]
  - LUMBAR VERTEBRAL FRACTURE [None]
  - FALL [None]
